FAERS Safety Report 15392203 (Version 2)
Quarter: 2018Q4

REPORT INFORMATION
  Report Type: Spontaneous
  Country: US (occurrence: US)
  Receive Date: 20180917
  Receipt Date: 20181008
  Transmission Date: 20190204
  Serious: No
  Sender: FDA-Public Use
  Company Number: US-SUNOVION-2018SUN003457

PATIENT
  Age: 28 Year
  Sex: Male
  Weight: 88.44 kg

DRUGS (4)
  1. BENZTROPINE. [Concomitant]
     Active Substance: BENZTROPINE
     Dosage: 1 MG, QD
     Route: 048
  2. LATUDA [Suspect]
     Active Substance: LURASIDONE HYDROCHLORIDE
     Indication: SCHIZOAFFECTIVE DISORDER
     Dosage: 60 MG, QD
     Route: 048
     Dates: start: 201708, end: 201806
  3. LATUDA [Suspect]
     Active Substance: LURASIDONE HYDROCHLORIDE
     Dosage: 50 MG, QD
     Route: 048
     Dates: start: 201806
  4. LORAZEPAM. [Concomitant]
     Active Substance: LORAZEPAM
     Indication: FEELING ABNORMAL
     Dosage: 1 MG, AS NECESSARY
     Route: 048

REACTIONS (3)
  - Speech disorder [Recovered/Resolved]
  - Dystonia [Recovered/Resolved]
  - Tongue disorder [Recovered/Resolved]

NARRATIVE: CASE EVENT DATE: 201806
